FAERS Safety Report 7534354-4 (Version None)
Quarter: 2011Q2

REPORT INFORMATION
  Report Type: 
  Country: None (occurrence: None)
  Receive Date: 20110608
  Receipt Date: 20110518
  Transmission Date: 20111010
  Serious: No
  Sender: FDA-Public Use
  Company Number: US-AMGEN-USASP2011025740

PATIENT
  Age: 84 Year
  Sex: Female

DRUGS (4)
  1. LISINOPRIL [Concomitant]
  2. ZOCOR [Concomitant]
  3. AMLODIPINE [Concomitant]
  4. PROLIA [Suspect]
     Indication: OSTEOPOROSIS POSTMENOPAUSAL
     Dosage: 60 MG, Q6MO
     Dates: start: 20110429

REACTIONS (1)
  - MUSCLE SPASMS [None]
